FAERS Safety Report 7129546-2 (Version None)
Quarter: 2010Q4

REPORT INFORMATION
  Report Type: 
  Country: None (occurrence: None)
  Receive Date: 20101130
  Receipt Date: 20101118
  Transmission Date: 20110411
  Serious: Yes (Hospitalization)
  Sender: FDA-Public Use
  Company Number: US-PFIZER INC-2010154740

PATIENT
  Sex: Female
  Weight: 61.224 kg

DRUGS (6)
  1. LYRICA [Suspect]
     Indication: PAIN
     Dosage: 100 MG, 3X/DAY
     Dates: start: 20070101, end: 20100101
  2. ZESTORETIC [Concomitant]
     Indication: BLOOD PRESSURE
     Dosage: UNK
  3. ULTRAM [Concomitant]
     Dosage: UNK
  4. FLEXERIL [Concomitant]
     Dosage: UNK
  5. ZOLOFT [Concomitant]
     Dosage: UNK
  6. OMEPRAZOLE [Concomitant]

REACTIONS (2)
  - HYPERHIDROSIS [None]
  - MEMORY IMPAIRMENT [None]
